FAERS Safety Report 13664145 (Version 2)
Quarter: 2017Q2

REPORT INFORMATION
  Report Type: Spontaneous
  Country: AU (occurrence: AU)
  Receive Date: 20170619
  Receipt Date: 20170626
  Transmission Date: 20170830
  Serious: Yes (Hospitalization, Other)
  Sender: FDA-Public Use
  Company Number: AU-PFIZER INC-2017266435

PATIENT
  Age: 39 Year
  Sex: Male

DRUGS (1)
  1. NUROFEN PLUS [Suspect]
     Active Substance: CODEINE PHOSPHATE\IBUPROFEN
     Dosage: 72 DF, UNK (IN 3 DAYS)
     Route: 048

REACTIONS (3)
  - Renal tubular acidosis [Unknown]
  - Intentional overdose [Unknown]
  - Hypokalaemia [Unknown]
